FAERS Safety Report 22914279 (Version 7)
Quarter: 2023Q4

REPORT INFORMATION
  Report Type: Report from Study
  Country: ES (occurrence: ES)
  Receive Date: 20230906
  Receipt Date: 20231115
  Transmission Date: 20240110
  Serious: Yes (Other)
  Sender: FDA-Public Use
  Company Number: ES-ABBVIE-5376533

PATIENT
  Sex: Female

DRUGS (3)
  1. CARBIDOPA\LEVODOPA [Suspect]
     Active Substance: CARBIDOPA\LEVODOPA
     Indication: Parkinson^s disease
     Route: 050
     Dates: start: 20230511, end: 202309
  2. CARBIDOPA\LEVODOPA [Suspect]
     Active Substance: CARBIDOPA\LEVODOPA
     Dosage: MORNING DOSE IS REDUCED BY 1 ML
     Route: 050
     Dates: start: 202309
  3. CARBIDOPA\LEVODOPA [Suspect]
     Active Substance: CARBIDOPA\LEVODOPA
     Dosage: DECREASED THE CONTINUOUS DOSE FROM 3.5 TO 3.2
     Route: 050
     Dates: start: 2023

REACTIONS (19)
  - Blood pressure abnormal [Recovering/Resolving]
  - Limb discomfort [Unknown]
  - Fatigue [Unknown]
  - Muscle fatigue [Recovering/Resolving]
  - Hypertension [Unknown]
  - Illness [Unknown]
  - Therapeutic product effect incomplete [Unknown]
  - Nerve injury [Unknown]
  - Gait disturbance [Unknown]
  - Speech disorder [Not Recovered/Not Resolved]
  - Dyskinesia [Recovering/Resolving]
  - Tension [Unknown]
  - Speech disorder [Unknown]
  - Confusional state [Unknown]
  - On and off phenomenon [Not Recovered/Not Resolved]
  - Musculoskeletal stiffness [Unknown]
  - Nervousness [Unknown]
  - Blood pressure decreased [Recovered/Resolved]
  - Anxiety [Recovering/Resolving]

NARRATIVE: CASE EVENT DATE: 20230101
